FAERS Safety Report 16860936 (Version 1)
Quarter: 2019Q4

REPORT INFORMATION
  Report Type: Spontaneous
  Country: US (occurrence: US)
  Receive Date: 20190927
  Receipt Date: 20190927
  Transmission Date: 20200122
  Serious: Yes (Life-Threatening, Hospitalization, Congenital Anomaly)
  Sender: FDA-Public Use
  Company Number: None

PATIENT
  Age: 69 Year
  Sex: Male
  Weight: 81 kg

DRUGS (11)
  1. LISINOPRIL-HCTZ TAB 20-25MG [Concomitant]
  2. ELIQUIS TAB 2.5MG [Concomitant]
  3. CIPROFLOXACIN TAB 500MG [Concomitant]
  4. LANTUS      VIAL U-100 [Concomitant]
  5. PRAVASTATIN SOD TAB 80MG [Concomitant]
  6. REVATIO [Concomitant]
     Active Substance: SILDENAFIL CITRATE
  7. ELIQUIS TAB 5MG [Concomitant]
  8. HYDROCODONE/APAP TAB 5/300 [Concomitant]
  9. BACTRIM DS   TAB 800-160 [Concomitant]
  10. TRULICITY [Suspect]
     Active Substance: DULAGLUTIDE
     Indication: DIABETES MELLITUS
     Dosage: ?          OTHER FREQUENCY:WEEKLY;?
     Route: 058
  11. LIDOCAINE    OIN 5% [Concomitant]

REACTIONS (1)
  - Swollen tongue [None]

NARRATIVE: CASE EVENT DATE: 20190912
